FAERS Safety Report 21786944 (Version 2)
Quarter: 2023Q1

REPORT INFORMATION
  Report Type: Report from Study
  Country: US (occurrence: US)
  Receive Date: 20221228
  Receipt Date: 20230202
  Transmission Date: 20230418
  Serious: No
  Sender: FDA-Public Use
  Company Number: US-ABBVIE-4231867

PATIENT
  Sex: Male

DRUGS (4)
  1. CARBIDOPA\LEVODOPA [Suspect]
     Active Substance: CARBIDOPA\LEVODOPA
     Indication: Parkinson^s disease
     Route: 050
     Dates: start: 202105
  2. CARBIDOPA\LEVODOPA [Suspect]
     Active Substance: CARBIDOPA\LEVODOPA
     Dosage: MORNING DOSE 9.8 ML, CONTINUOUS 5.6ML, EXTRA DOSE 3.2 ML EVERY 30 MINUTES
     Route: 050
     Dates: start: 20201112
  3. CARBIDOPA\LEVODOPA [Suspect]
     Active Substance: CARBIDOPA\LEVODOPA
     Dosage: 4.63-20MG?MORNING DOSE 9.8 ML, CONTINUOUS 5.6ML, EXTRA DOSE 3.2 ML EVERY 30 MINS
     Route: 050
     Dates: start: 20210603
  4. GOCOVRI [Concomitant]
     Active Substance: AMANTADINE
     Indication: Product used for unknown indication
     Dosage: INCREASED DOSE FROM 1 CAPSULE TO 2 CAPSULES PER DAY
     Route: 048

REACTIONS (6)
  - Dyskinesia [Not Recovered/Not Resolved]
  - Device issue [Not Recovered/Not Resolved]
  - Sensory disturbance [Unknown]
  - Mental disorder [Unknown]
  - Drug hypersensitivity [Unknown]
  - General physical condition abnormal [Unknown]
